FAERS Safety Report 14152662 (Version 3)
Quarter: 2018Q1

REPORT INFORMATION
  Report Type: Spontaneous
  Country: JP (occurrence: JP)
  Receive Date: 20171102
  Receipt Date: 20180131
  Transmission Date: 20180508
  Serious: Yes (Other)
  Sender: FDA-Public Use
  Company Number: JP-PFIZER INC-2017471290

PATIENT
  Age: 4 Year
  Sex: Female

DRUGS (2)
  1. FOSPHENYTOIN SODIUM. [Suspect]
     Active Substance: FOSPHENYTOIN SODIUM
     Indication: CLONIC CONVULSION
     Dosage: UNK
     Route: 042
  2. CARBAMAZEPINE. [Concomitant]
     Active Substance: CARBAMAZEPINE
     Indication: CLONIC CONVULSION
     Dosage: UNK
     Route: 048

REACTIONS (3)
  - Apnoea [Unknown]
  - Delirium [Unknown]
  - Somnolence [Unknown]
